FAERS Safety Report 21161285 (Version 1)
Quarter: 2022Q3

REPORT INFORMATION
  Report Type: Spontaneous
  Country: US (occurrence: None)
  Receive Date: 20220801
  Receipt Date: 20220801
  Transmission Date: 20221027
  Serious: Yes (Other)
  Sender: FDA-Public Use
  Company Number: None

PATIENT
  Age: 23 Year
  Sex: Female
  Weight: 79.8 kg

DRUGS (2)
  1. ISOVUE 370 [Suspect]
     Active Substance: IOPAMIDOL
     Indication: Contrast media deposition
     Dosage: 65 ML ONCE INTRAVENOUS BOLUS?
     Route: 040
     Dates: start: 20220707, end: 20220707
  2. PROPRANOLOL HYDROCHLORIDE [Concomitant]
     Active Substance: PROPRANOLOL HYDROCHLORIDE
     Dates: start: 20220707, end: 20220707

REACTIONS (2)
  - Throat tightness [None]
  - Injection related reaction [None]

NARRATIVE: CASE EVENT DATE: 20220707
